FAERS Safety Report 6377721-7 (Version None)
Quarter: 2009Q3

REPORT INFORMATION
  Report Type: 
  Country: None (occurrence: None)
  Receive Date: 20090925
  Receipt Date: 20090914
  Transmission Date: 20100115
  Serious: Yes (Other)
  Sender: FDA-Public Use
  Company Number: PL-PFIZER INC-2009268686

PATIENT
  Age: 40 Year

DRUGS (1)
  1. ZELDOX [Suspect]

REACTIONS (1)
  - CARDIAC ARREST [None]
